FAERS Safety Report 10252468 (Version 2)
Quarter: 2014Q2

REPORT INFORMATION
  Report Type: Spontaneous
  Country: FR (occurrence: FR)
  Receive Date: 20140623
  Receipt Date: 20140623
  Transmission Date: 20141212
  Serious: Yes (Other)
  Sender: FDA-Public Use
  Company Number: FR-PFIZER INC-2014004257

PATIENT
  Age: 70 Year
  Sex: Female

DRUGS (3)
  1. EFFEXOR LP [Suspect]
     Dosage: 75 MG, ONCE A DAY
     Dates: start: 201301
  2. EFFEXOR LP [Suspect]
     Dosage: 37.5 MG, UNK
     Dates: start: 20140104
  3. INEXIUM /01479302/ [Concomitant]
     Indication: PROPHYLAXIS
     Dosage: UNK

REACTIONS (7)
  - Oxygen saturation decreased [Unknown]
  - Dyspnoea [Unknown]
  - Hypertension [Unknown]
  - Nausea [Unknown]
  - Vertigo [Unknown]
  - Cough [Unknown]
  - Fatigue [Unknown]
